FAERS Safety Report 9303949 (Version 1)
Quarter: 2013Q2

REPORT INFORMATION
  Report Type: Spontaneous
  Country: US (occurrence: US)
  Receive Date: 20130522
  Receipt Date: 20130522
  Transmission Date: 20140414
  Serious: Yes (Hospitalization, Other)
  Sender: FDA-Public Use
  Company Number: US-ACTAVIS-2013-08566

PATIENT
  Age: 48 Year
  Sex: Female

DRUGS (1)
  1. GLIBENCLAMIDE (UNKNOWN) [Suspect]
     Indication: INTENTIONAL DRUG MISUSE
     Dosage: 2 TABLETS
     Route: 048

REACTIONS (5)
  - Coma [Recovered/Resolved]
  - Unresponsive to stimuli [Recovered/Resolved]
  - Hypoglycaemia [Recovered/Resolved]
  - Hyperhidrosis [Recovered/Resolved]
  - Intentional drug misuse [Recovered/Resolved]
